FAERS Safety Report 7364113-7 (Version None)
Quarter: 2011Q1

REPORT INFORMATION
  Report Type: 
  Country: None (occurrence: None)
  Receive Date: 20110321
  Receipt Date: 20110315
  Transmission Date: 20110831
  Serious: Yes (Death, Hospitalization)
  Sender: FDA-Public Use
  Company Number: PHFR2011GB01536

PATIENT
  Sex: Male

DRUGS (1)
  1. AFINITOR [Suspect]
     Dosage: 10 MG, UNK

REACTIONS (4)
  - RESPIRATORY DISORDER [None]
  - PULMONARY EMBOLISM [None]
  - PNEUMONITIS [None]
  - DYSPNOEA [None]
